FAERS Safety Report 10945715 (Version 3)
Quarter: 2015Q2

REPORT INFORMATION
  Report Type: Spontaneous
  Country: US (occurrence: US)
  Receive Date: 20150323
  Receipt Date: 20150408
  Transmission Date: 20150821
  Serious: Yes (Other)
  Sender: FDA-Public Use
  Company Number: US-UNITED THERAPEUTICS-UNT-2014-009182

PATIENT
  Age: 69 Year
  Sex: Female
  Weight: 83.9 kg

DRUGS (6)
  1. ADCIRCA [Concomitant]
     Active Substance: TADALAFIL
     Indication: PRODUCT USED FOR UNKNOWN INDICATION
  2. TYVASO [Suspect]
     Active Substance: TREPROSTINIL
     Indication: PULMONARY HYPERTENSION
     Dosage: 18-54 ?G, QID
     Dates: start: 20130129, end: 20141112
  3. TYVASO [Suspect]
     Active Substance: TREPROSTINIL
     Indication: COR PULMONALE CHRONIC
  4. ORENITRAM [Suspect]
     Active Substance: TREPROSTINIL
     Indication: PULMONARY HYPERTENSION
     Dosage: 0.125 MG, Q12H
     Route: 048
     Dates: start: 20141105
  5. ORENITRAM [Suspect]
     Active Substance: TREPROSTINIL
     Indication: PULMONARY ARTERIAL HYPERTENSION
     Dosage: 0.625 MG, Q12H
     Route: 048
  6. ORENITRAM [Suspect]
     Active Substance: TREPROSTINIL
     Dosage: 1 MG, BID
     Route: 048
     Dates: start: 20141220

REACTIONS (9)
  - Diarrhoea [Unknown]
  - Headache [Unknown]
  - Cough [Unknown]
  - Dyspnoea [Unknown]
  - Haemoglobin decreased [Unknown]
  - Retching [Unknown]
  - Malaise [Unknown]
  - Platelet count decreased [Unknown]
  - Nausea [Unknown]

NARRATIVE: CASE EVENT DATE: 2014
